FAERS Safety Report 8232103-8 (Version None)
Quarter: 2012Q1

REPORT INFORMATION
  Report Type: 
  Country: None (occurrence: None)
  Receive Date: 20120323
  Receipt Date: 20120315
  Transmission Date: 20120608
  Serious: Yes (Death, Other)
  Sender: FDA-Public Use
  Company Number: FR-TEVA-320535ISR

PATIENT
  Sex: Male

DRUGS (9)
  1. GALVUS (VILDAGLIPTINE) [Concomitant]
     Indication: DIABETES MELLITUS
     Dosage: 50 MILLIGRAM;
     Route: 048
  2. PERINDOPRIL ERBUMINE [Concomitant]
     Indication: CARDIAC DISORDER
     Dosage: 2.5 MILLIGRAM;
     Route: 048
  3. FLECAINIDE ACETATE [Concomitant]
     Indication: CARDIAC DISORDER
     Dosage: 100 MILLIGRAM;
     Route: 048
  4. AMARYL [Concomitant]
     Indication: DIABETES MELLITUS
     Dosage: 2 MILLIGRAM;
     Route: 048
  5. ROCEPHIN [Concomitant]
     Indication: LUNG INFECTION
     Dates: start: 20120128
  6. MORPHINE [Concomitant]
     Indication: PAIN
     Dosage: 10 MILLIGRAM; 1 AMP (10 MG)
     Dates: start: 20120120
  7. FENTANYL CITRATE [Suspect]
     Indication: PAIN
     Dosage: 200 MICROGRAM;
     Route: 002
     Dates: start: 20120126, end: 20120129
  8. IPERTEN [Concomitant]
     Indication: CARDIAC DISORDER
     Dosage: 10 MILLIGRAM;
     Route: 048
  9. ASPIRIN [Concomitant]
     Indication: CARDIAC DISORDER
     Dosage: 300 MILLIGRAM;
     Route: 048

REACTIONS (2)
  - OFF LABEL USE [None]
  - LUNG INFECTION [None]
